FAERS Safety Report 7363535-8 (Version None)
Quarter: 2011Q1

REPORT INFORMATION
  Report Type: 
  Country: None (occurrence: None)
  Receive Date: 20110321
  Receipt Date: 20110311
  Transmission Date: 20110831
  Serious: Yes (Hospitalization, Other)
  Sender: FDA-Public Use
  Company Number: US-JNJFOC-20100804158

PATIENT
  Sex: Male

DRUGS (2)
  1. LEVAQUIN [Suspect]
     Indication: LOBAR PNEUMONIA
     Route: 048
  2. LEVAQUIN [Suspect]
     Indication: BRONCHITIS
     Route: 048

REACTIONS (6)
  - JOINT INJURY [None]
  - ROTATOR CUFF SYNDROME [None]
  - ARTHRALGIA [None]
  - JOINT SWELLING [None]
  - HYPERSENSITIVITY [None]
  - JOINT STIFFNESS [None]
